FAERS Safety Report 8333831-6 (Version None)
Quarter: 2012Q2

REPORT INFORMATION
  Report Type: 
  Country: None (occurrence: None)
  Receive Date: 20120503
  Receipt Date: 20120424
  Transmission Date: 20120825
  Serious: Yes (Other)
  Sender: FDA-Public Use
  Company Number: IT-ASTRAZENECA-2012SE26697

PATIENT
  Age: 16942 Day
  Sex: Female

DRUGS (3)
  1. MINIAS [Suspect]
     Indication: PANIC ATTACK
     Route: 048
     Dates: start: 20100101
  2. CRESTOR [Suspect]
     Indication: HYPERCHOLESTEROLAEMIA
     Route: 048
     Dates: start: 20101001
  3. PASADEN [Suspect]
     Indication: SLEEP DISORDER
     Route: 048
     Dates: start: 20120417, end: 20120421

REACTIONS (5)
  - VERTIGO [None]
  - HYPOTENSION [None]
  - MUSCULAR WEAKNESS [None]
  - SYNCOPE [None]
  - ATAXIA [None]
